FAERS Safety Report 5398912-8 (Version None)
Quarter: 2007Q3

REPORT INFORMATION
  Report Type: 
  Country: None (occurrence: None)
  Receive Date: 20070727
  Receipt Date: 20070720
  Transmission Date: 20080115
  Serious: Yes (Hospitalization)
  Sender: FDA-Public Use
  Company Number: GB-BAYER-200710740BNE

PATIENT
  Sex: Male

DRUGS (1)
  1. GLUCOBAY [Suspect]
     Dosage: TOTAL DAILY DOSE: 100 MG

REACTIONS (3)
  - HYPERSOMNIA [None]
  - LETHARGY [None]
  - MALAISE [None]
